FAERS Safety Report 15003278 (Version 2)
Quarter: 2018Q2

REPORT INFORMATION
  Report Type: Report from Study
  Country: TW (occurrence: TW)
  Receive Date: 20180613
  Receipt Date: 20180626
  Transmission Date: 20180711
  Serious: Yes (Other)
  Sender: FDA-Public Use
  Company Number: PHHY2018TW018879

PATIENT
  Age: 71 Year
  Sex: Male

DRUGS (7)
  1. EXELON PATCH [Suspect]
     Active Substance: RIVASTIGMINE
     Indication: DEMENTIA ALZHEIMER^S TYPE
     Dosage: 9.5 MG, QD PATCH 10 (CM2)
     Route: 062
     Dates: start: 20170308
  2. DIOVAN [Concomitant]
     Active Substance: VALSARTAN
     Indication: MALIGNANT HYPERTENSIVE HEART DISEASE
     Dosage: 160 MG, UNK
     Route: 048
     Dates: start: 20161111, end: 20180221
  3. RASITOL [Concomitant]
     Indication: DEMENTIA
     Dosage: 40 MG, UNK
     Route: 048
     Dates: start: 20161111, end: 20180221
  4. THROUGH [Concomitant]
     Indication: CONSTIPATION
     Dosage: 20 MG, UNK
     Route: 048
     Dates: start: 20160921, end: 20170711
  5. MAGNESIUM OXIDE. [Concomitant]
     Active Substance: MAGNESIUM OXIDE
     Indication: CONSTIPATION
     Dosage: 250 MG, UNK
     Route: 048
     Dates: start: 20170124, end: 20170605
  6. RIVOTRIL [Concomitant]
     Active Substance: CLONAZEPAM
     Indication: PROPHYLAXIS
     Dosage: 0.5 MG, UNK
     Route: 048
     Dates: start: 20150423
  7. EXELON [Concomitant]
     Active Substance: RIVASTIGMINE TARTRATE
     Indication: DEMENTIA
     Dosage: 1.5 MG, UNK
     Route: 048
     Dates: start: 20161019, end: 20170307

REACTIONS (1)
  - Parkinson^s disease [Recovered/Resolved]

NARRATIVE: CASE EVENT DATE: 20171102
